FAERS Safety Report 4991235-8 (Version None)
Quarter: 2006Q2

REPORT INFORMATION
  Report Type: 
  Country: None (occurrence: None)
  Receive Date: 20060427
  Receipt Date: 20060418
  Transmission Date: 20061013
  Serious: Yes (Death)
  Sender: FDA-Public Use
  Company Number: 13928

PATIENT
  Age: 30 Year
  Sex: Male

DRUGS (2)
  1. ACYCLOVIR [Suspect]
     Indication: VARICELLA
     Dosage: 10 MG/KG TID IV
     Route: 042
  2. VARICELLA-ZOSTER IMMUNE GLOBULIN (HUMAN) [Suspect]
     Indication: PROPHYLAXIS
     Dosage: 1 G ONCE IM
     Route: 030

REACTIONS (9)
  - APPLICATION SITE BLEEDING [None]
  - CONTUSION [None]
  - GENERAL PHYSICAL HEALTH DETERIORATION [None]
  - HAEMORRHAGE [None]
  - HERPES ZOSTER [None]
  - MOUTH ULCERATION [None]
  - MULTI-ORGAN FAILURE [None]
  - MUSCULOSKELETAL CHEST PAIN [None]
  - RENAL FAILURE ACUTE [None]
